FAERS Safety Report 12726279 (Version 1)
Quarter: 2016Q3

REPORT INFORMATION
  Report Type: Spontaneous
  Country: US (occurrence: US)
  Receive Date: 20160906
  Receipt Date: 20160906
  Transmission Date: 20161109
  Serious: Yes (Disabling)
  Sender: FDA-Public Use
  Company Number: None

PATIENT
  Age: 30 Year
  Sex: Male
  Weight: 81 kg

DRUGS (1)
  1. LEVOFLOXACIN. [Suspect]
     Active Substance: LEVOFLOXACIN
     Indication: CYSTITIS
     Route: 048
     Dates: start: 20160823, end: 20160824

REACTIONS (11)
  - Dyspnoea [None]
  - Pain in extremity [None]
  - Arthralgia [None]
  - Abdominal pain [None]
  - Chest discomfort [None]
  - Throat tightness [None]
  - Limb discomfort [None]
  - Fatigue [None]
  - Musculoskeletal stiffness [None]
  - Dizziness [None]
  - Tendon pain [None]

NARRATIVE: CASE EVENT DATE: 20160823
